FAERS Safety Report 13268450 (Version 7)
Quarter: 2017Q3

REPORT INFORMATION
  Report Type: Spontaneous
  Country: US (occurrence: US)
  Receive Date: 20170224
  Receipt Date: 20170810
  Transmission Date: 20171127
  Serious: Yes (Hospitalization, Congenital Anomaly, Other)
  Sender: FDA-Public Use
  Company Number: PHEH2017US005725

PATIENT
  Sex: Female

DRUGS (2)
  1. ONDANSETRON. [Suspect]
     Active Substance: ONDANSETRON
     Indication: FOETAL EXPOSURE DURING PREGNANCY
     Dosage: MOTHER DOSE: 04 MG, Q6H
     Route: 064
  2. ZOFRAN ODT [Suspect]
     Active Substance: ONDANSETRON HYDROCHLORIDE
     Indication: FOETAL EXPOSURE DURING PREGNANCY
     Dosage: MOTHER DOSE: 04 MG, Q6H
     Route: 064

REACTIONS (54)
  - Patent ductus arteriosus [Unknown]
  - Vomiting [Unknown]
  - Right ventricular enlargement [Unknown]
  - Otitis media acute [Unknown]
  - Strabismus [Unknown]
  - Bicuspid aortic valve [Unknown]
  - Pneumothorax [Unknown]
  - Deformity [Unknown]
  - Cardiac murmur [Unknown]
  - Jaundice neonatal [Unknown]
  - Candida infection [Unknown]
  - Atrial septal defect [Unknown]
  - Ventricular septal defect [Unknown]
  - Pyelocaliectasis [Unknown]
  - Cardiomegaly [Unknown]
  - Emotional distress [Unknown]
  - Fluid retention [Unknown]
  - Food aversion [Unknown]
  - Feeding intolerance [Unknown]
  - Nasal congestion [Unknown]
  - Urticaria [Unknown]
  - Constipation [Unknown]
  - Right aortic arch [Unknown]
  - Tricuspid valve incompetence [Unknown]
  - Foetal exposure during pregnancy [Unknown]
  - Pain [Unknown]
  - Eye infection [Unknown]
  - Large for dates baby [Unknown]
  - Dermatitis atopic [Unknown]
  - Gastroenteritis [Unknown]
  - Pharyngitis [Unknown]
  - Hypertension [Unknown]
  - Gastrooesophageal reflux disease [Unknown]
  - Aorta hypoplasia [Unknown]
  - Laryngomalacia [Unknown]
  - Pleural effusion [Unknown]
  - Gross motor delay [Unknown]
  - Anhedonia [Unknown]
  - Dermatitis diaper [Unknown]
  - Rash neonatal [Unknown]
  - Multiple cardiac defects [Unknown]
  - Coarctation of the aorta [Unknown]
  - Left-to-right cardiac shunt [Unknown]
  - Neonatal tachypnoea [Unknown]
  - Wound dehiscence [Unknown]
  - Upper respiratory tract infection [Unknown]
  - Stomatitis [Unknown]
  - Hand-foot-and-mouth disease [Unknown]
  - Failure to thrive [Unknown]
  - Cardiac failure congestive [Unknown]
  - Pulmonary congestion [Unknown]
  - Fever neonatal [Unknown]
  - Injury [Unknown]
  - Ear infection [Unknown]
